FAERS Safety Report 5191562-8 (Version None)
Quarter: 2006Q4

REPORT INFORMATION
  Report Type: 
  Country: None (occurrence: None)
  Receive Date: 20061220
  Receipt Date: 20061220
  Transmission Date: 20070319
  Serious: Yes (Hospitalization)
  Sender: FDA-Public Use
  Company Number: None

PATIENT
  Age: 70 Year
  Sex: Male

DRUGS (1)
  1. SOTALOL HYDROCHLORIDE [Suspect]

REACTIONS (2)
  - DYSPNOEA EXERTIONAL [None]
  - RENAL FAILURE ACUTE [None]
